FAERS Safety Report 26005939 (Version 1)
Quarter: 2025Q4

REPORT INFORMATION
  Report Type: Spontaneous
  Country: US (occurrence: US)
  Receive Date: 20251106
  Receipt Date: 20251106
  Transmission Date: 20260118
  Serious: Yes (Other)
  Sender: AMGEN
  Company Number: US-AMGEN-USASP2025213459

PATIENT

DRUGS (2)
  1. PREDNISONE [Suspect]
     Active Substance: PREDNISONE
     Indication: Myelin oligodendrocyte glycoprotein antibody-associated disease
     Dosage: UNK
     Route: 065
  2. RITUXIMAB [Suspect]
     Active Substance: RITUXIMAB
     Indication: Myelin oligodendrocyte glycoprotein antibody-associated disease
     Dosage: UNK
     Route: 065

REACTIONS (9)
  - Myelin oligodendrocyte glycoprotein antibody-associated disease [Unknown]
  - HELLP syndrome [Unknown]
  - Haemorrhage in pregnancy [Unknown]
  - Ovarian cyst [Unknown]
  - Abnormal uterine bleeding [Unknown]
  - Vaginal haemorrhage [Unknown]
  - Pre-eclampsia [Unknown]
  - Maternal exposure during pregnancy [Unknown]
  - Off label use [Unknown]
